FAERS Safety Report 12914097 (Version 2)
Quarter: 2017Q1

REPORT INFORMATION
  Report Type: Spontaneous
  Country: FR (occurrence: FR)
  Receive Date: 20161105
  Receipt Date: 20170111
  Transmission Date: 20170428
  Serious: Yes (Life-Threatening, Other)
  Sender: FDA-Public Use
  Company Number: FR-ASTRAZENECA-2016SF14477

PATIENT
  Age: 21299 Day
  Sex: Male

DRUGS (13)
  1. IMOVANE [Concomitant]
     Active Substance: ZOPICLONE
  2. SUFENTAIL [Concomitant]
  3. BRILIQUE [Suspect]
     Active Substance: TICAGRELOR
     Indication: MYOCARDIAL INFARCTION
     Route: 048
     Dates: start: 20160829, end: 20160830
  4. TIAPRIDAL [Concomitant]
     Active Substance: TIAPRIDE HYDROCHLORIDE
  5. EQUANIL [Concomitant]
     Active Substance: MEPROBAMATE
  6. EUPANTOL [Concomitant]
     Active Substance: PANTOPRAZOLE SODIUM
  7. NOREPINEPHRINE [Concomitant]
     Active Substance: NOREPINEPHRINE\NOREPINEPHRINE BITARTRATE
     Indication: MYOCARDIAL INFARCTION
     Dosage: 2MG PER HOUR
  8. HUMALOG [Concomitant]
     Active Substance: INSULIN LISPRO
  9. MIDAZOLAM [Concomitant]
     Active Substance: MIDAZOLAM HYDROCHLORIDE
  10. AUGMENTIN [Concomitant]
     Active Substance: AMOXICILLIN\CLAVULANATE POTASSIUM
  11. HEPARIN [Suspect]
     Active Substance: HEPARIN SODIUM
     Indication: MYOCARDIAL INFARCTION
     Route: 065
     Dates: start: 20160829, end: 20160830
  12. KARDEGIC [Suspect]
     Active Substance: ASPIRIN LYSINE
     Indication: MYOCARDIAL INFARCTION
     Route: 048
     Dates: start: 20160829, end: 20160901
  13. KARDEGIC [Suspect]
     Active Substance: ASPIRIN LYSINE
     Indication: MYOCARDIAL INFARCTION
     Route: 048

REACTIONS (3)
  - Coma [Recovering/Resolving]
  - Cerebral haematoma [Recovered/Resolved with Sequelae]
  - Brain oedema [Unknown]

NARRATIVE: CASE EVENT DATE: 20160830
